FAERS Safety Report 4771438-8 (Version None)
Quarter: 2005Q3

REPORT INFORMATION
  Report Type: 
  Country: None (occurrence: None)
  Receive Date: 20050914
  Receipt Date: 20050826
  Transmission Date: 20060218
  Serious: Yes (Hospitalization, Disabling, Other)
  Sender: FDA-Public Use
  Company Number: USA0508106670

PATIENT
  Age: 80 Year
  Sex: Male

DRUGS (2)
  1. ZYPREXA [Suspect]
     Indication: AGITATION
     Dosage: 7.5 MG DAY
     Dates: start: 20041116, end: 20050201
  2. ZYPREXA [Suspect]
     Indication: AGITATION
     Dosage: 105 MG AS NEEDED
     Dates: start: 20041116, end: 20041201

REACTIONS (7)
  - ABASIA [None]
  - CHOKING [None]
  - COMA [None]
  - DROOLING [None]
  - EYE DISORDER [None]
  - FOOD INTOLERANCE [None]
  - PNEUMONIA ASPIRATION [None]
